FAERS Safety Report 4547212-4 (Version None)
Quarter: 2005Q1

REPORT INFORMATION
  Report Type: 
  Country: None (occurrence: None)
  Receive Date: 20050107
  Receipt Date: 20041216
  Transmission Date: 20050727
  Serious: Yes (Disabling)
  Sender: FDA-Public Use
  Company Number: JP-JNJFOC-20040104653

PATIENT
  Sex: Female

DRUGS (7)
  1. LEVOFLOXACIN [Suspect]
     Indication: PYREXIA
     Route: 049
     Dates: start: 20031214, end: 20031216
  2. LEVOFLOXACIN [Suspect]
     Indication: INFECTION
     Route: 049
     Dates: start: 20031214, end: 20031216
  3. GLYBURIDE [Interacting]
     Indication: DIABETES MELLITUS
     Route: 049
  4. ALDACTONE-A [Concomitant]
     Route: 049
  5. GASTER D [Concomitant]
     Route: 049
  6. CONTOMIN [Concomitant]
  7. PONTAL [Concomitant]
     Route: 049

REACTIONS (2)
  - DRUG INTERACTION [None]
  - HYPOGLYCAEMIC COMA [None]
